FAERS Safety Report 23334958 (Version 3)
Quarter: 2023Q4

REPORT INFORMATION
  Report Type: Report from Study
  Country: CH (occurrence: CH)
  Receive Date: 20231225
  Receipt Date: 20231229
  Transmission Date: 20240110
  Serious: Yes (Hospitalization)
  Sender: FDA-Public Use
  Company Number: CH-ABBVIE-5556290

PATIENT
  Age: 66 Year
  Sex: Female

DRUGS (5)
  1. CARBIDOPA\LEVODOPA [Suspect]
     Active Substance: CARBIDOPA\LEVODOPA
     Indication: Parkinson^s disease
     Dosage: MD: 3.0 ML, CRD: 5.7 ML/H, CRN: 4.0 ML/H, ED: 2.5 ML;?FREQUENCY TEXT: 24H THERAPY
     Route: 050
     Dates: start: 20230526, end: 20230622
  2. CARBIDOPA\LEVODOPA [Suspect]
     Active Substance: CARBIDOPA\LEVODOPA
     Dosage: CRN: 2.1 ML/H, ED: 1.5 ML;?FREQUENCY TEXT: 24H THERAPY
     Route: 050
     Dates: start: 20230704, end: 20231220
  3. CARBIDOPA\LEVODOPA [Suspect]
     Active Substance: CARBIDOPA\LEVODOPA
     Dosage: FREQUENCY TEXT: 24H THERAPY
     Route: 050
     Dates: start: 20210914
  4. CARBIDOPA\LEVODOPA [Suspect]
     Active Substance: CARBIDOPA\LEVODOPA
     Dosage: MD: 2.0 ML, CRD: 3.3 ML/H,  ED: 1.5 ML;?FREQUENCY TEXT: 24H THERAPY
     Route: 050
     Dates: start: 20230623, end: 20230703
  5. CARBIDOPA\LEVODOPA [Suspect]
     Active Substance: CARBIDOPA\LEVODOPA
     Dosage: CRD: 3.3 ML/H,  ED: 1.5 ML
     Route: 050
     Dates: start: 20231221

REACTIONS (6)
  - Mental disorder [Not Recovered/Not Resolved]
  - Device issue [Not Recovered/Not Resolved]
  - Dyskinesia [Not Recovered/Not Resolved]
  - Device kink [Not Recovered/Not Resolved]
  - Device use error [Not Recovered/Not Resolved]
  - Device issue [Recovered/Resolved]

NARRATIVE: CASE EVENT DATE: 20231201
